FAERS Safety Report 18045255 (Version 1)
Quarter: 2020Q3

REPORT INFORMATION
  Report Type: Spontaneous
  Country: CN (occurrence: CN)
  Receive Date: 20200720
  Receipt Date: 20200720
  Transmission Date: 20201103
  Serious: Yes (Hospitalization, Other)
  Sender: FDA-Public Use
  Company Number: CN-PFIZER INC-2020273727

PATIENT
  Age: 6 Year
  Sex: Male
  Weight: 23.8 kg

DRUGS (1)
  1. CYTARABINE. [Suspect]
     Active Substance: CYTARABINE
     Indication: BURKITT^S LYMPHOMA
     Dosage: 0.043 G, 2X/DAY
     Dates: start: 20200627, end: 20200630

REACTIONS (5)
  - Temperature intolerance [Recovered/Resolved]
  - Breath sounds abnormal [Recovered/Resolved]
  - Body temperature fluctuation [Recovered/Resolved]
  - Chills [Recovered/Resolved]
  - Pyrexia [Recovered/Resolved]

NARRATIVE: CASE EVENT DATE: 20200628
